FAERS Safety Report 4535422-1 (Version None)
Quarter: 2004Q4

REPORT INFORMATION
  Report Type: 
  Country: None (occurrence: None)
  Receive Date: 20041222
  Receipt Date: 20041217
  Transmission Date: 20050328
  Serious: Yes (Hospitalization)
  Sender: FDA-Public Use
  Company Number: US-MERCK-0412USA02256

PATIENT

DRUGS (2)
  1. FOSAMAX [Suspect]
     Route: 048
  2. MIACALCIN [Concomitant]
     Route: 065

REACTIONS (2)
  - DIVERTICULUM [None]
  - INTESTINAL OBSTRUCTION [None]
